FAERS Safety Report 23311438 (Version 3)
Quarter: 2024Q1

REPORT INFORMATION
  Report Type: Report from Study
  Country: US (occurrence: US)
  Receive Date: 20231219
  Receipt Date: 20240206
  Transmission Date: 20240410
  Serious: Yes (Hospitalization)
  Sender: FDA-Public Use
  Company Number: US-ZENPEP LLC-2023AIMT01376

PATIENT

DRUGS (2)
  1. ZENPEP [Suspect]
     Active Substance: PANCRELIPASE AMYLASE\PANCRELIPASE LIPASE\PANCRELIPASE PROTEASE
     Indication: Pancreatic failure
     Dosage: 40 000 USP 100 CT CAPSULES
     Route: 048
     Dates: start: 20210510
  2. ZENPEP [Suspect]
     Active Substance: PANCRELIPASE AMYLASE\PANCRELIPASE LIPASE\PANCRELIPASE PROTEASE
     Dosage: 40 000 USP 100 CT CAPSULES, ONCE, LAST DOSE PRIOR EVENT
     Route: 048

REACTIONS (2)
  - Bacterial infection [Unknown]
  - Expired product administered [Unknown]

NARRATIVE: CASE EVENT DATE: 20230901
